FAERS Safety Report 17840507 (Version 2)
Quarter: 2020Q3

REPORT INFORMATION
  Report Type: Spontaneous
  Country: US (occurrence: US)
  Receive Date: 20200529
  Receipt Date: 20200704
  Transmission Date: 20201103
  Serious: Yes (Other)
  Sender: FDA-Public Use
  Company Number: US-009507513-2005USA009803

PATIENT

DRUGS (2)
  1. DECADRON [Suspect]
     Active Substance: DEXAMETHASONE
     Indication: GLIOMA
     Dosage: HIGH DOSE, MORE THAN 8 MG DAILY AT INITIAL DOSING
     Route: 048
  2. DECADRON [Suspect]
     Active Substance: DEXAMETHASONE
     Dosage: MINIMUM REQUIRED DOSE, RANGED FROM 0.5 MG TO 2 MG DAILY
     Route: 048

REACTIONS (3)
  - Steroid withdrawal syndrome [Recovering/Resolving]
  - Steroid dependence [Recovering/Resolving]
  - Adrenal insufficiency [Recovering/Resolving]
